FAERS Safety Report 17260514 (Version 5)
Quarter: 2020Q1

REPORT INFORMATION
  Report Type: Spontaneous
  Country: US (occurrence: US)
  Receive Date: 20200113
  Receipt Date: 20200306
  Transmission Date: 20200409
  Serious: Yes (Other)
  Sender: FDA-Public Use
  Company Number: US-AMGEN-USASP2020002539

PATIENT
  Sex: Female

DRUGS (1)
  1. ENBREL [Suspect]
     Active Substance: ETANERCEPT
     Indication: PRODUCT USED FOR UNKNOWN INDICATION
     Dosage: UNK
     Route: 065

REACTIONS (11)
  - Loss of personal independence in daily activities [Unknown]
  - Deafness [Unknown]
  - Blood pressure abnormal [Unknown]
  - Gait disturbance [Unknown]
  - Drug ineffective [Unknown]
  - Back pain [Unknown]
  - Laryngitis [Unknown]
  - Pain in extremity [Unknown]
  - Pain [Unknown]
  - Bronchitis [Unknown]
  - Dysstasia [Unknown]
